FAERS Safety Report 6460717-4 (Version None)
Quarter: 2009Q4

REPORT INFORMATION
  Report Type: 
  Country: None (occurrence: None)
  Receive Date: 20091130
  Receipt Date: 20091118
  Transmission Date: 20100525
  Serious: Yes (Hospitalization)
  Sender: FDA-Public Use
  Company Number: US-ASTRAZENECA-2009SE27611

PATIENT
  Age: 52 Year
  Sex: Female

DRUGS (3)
  1. SEROQUEL [Suspect]
     Indication: SCHIZOPHRENIA
     Dosage: 200 MG AM, 200 MG  MID-DAY, 400 MG QHS
     Route: 048
  2. COGENTIN [Concomitant]
  3. INVEGA [Concomitant]

REACTIONS (1)
  - COLONIC PSEUDO-OBSTRUCTION [None]
